FAERS Safety Report 14545429 (Version 1)
Quarter: 2018Q1

REPORT INFORMATION
  Report Type: Spontaneous
  Country: US (occurrence: US)
  Receive Date: 20180219
  Receipt Date: 20180219
  Transmission Date: 20180509
  Serious: Yes (Other)
  Sender: FDA-Public Use
  Company Number: US-BAUSCH-BL-2018-004193

PATIENT
  Age: 76 Year
  Sex: Male

DRUGS (1)
  1. LOTEMAX [Suspect]
     Active Substance: LOTEPREDNOL ETABONATE
     Indication: POSTOPERATIVE CARE
     Dosage: ONE DROP EVERY OTHER DAY IN LEFT EYE
     Route: 047

REACTIONS (7)
  - Vocal cord disorder [Unknown]
  - Optic nerve disorder [Unknown]
  - Cataract [Unknown]
  - Ocular discomfort [Unknown]
  - Product use issue [Unknown]
  - Glaucoma [Unknown]
  - Drug prescribing error [Unknown]
